FAERS Safety Report 16790064 (Version 1)
Quarter: 2019Q3

REPORT INFORMATION
  Report Type: Spontaneous
  Country: AU (occurrence: AU)
  Receive Date: 20190910
  Receipt Date: 20190910
  Transmission Date: 20191005
  Serious: Yes (Other)
  Sender: FDA-Public Use
  Company Number: AU-MYLANLABS-2019M1084005

PATIENT
  Age: 73 Year
  Sex: Female

DRUGS (3)
  1. VENLAFAXINE [Suspect]
     Active Substance: VENLAFAXINE HYDROCHLORIDE
     Indication: PRODUCT USED FOR UNKNOWN INDICATION
     Dosage: UNK
  2. CLOPINE [Suspect]
     Active Substance: CLOZAPINE
     Indication: PRODUCT USED FOR UNKNOWN INDICATION
     Dosage: UNK
  3. BENZTROPINE MESYLATE. [Concomitant]
     Active Substance: BENZTROPINE MESYLATE
     Dosage: UNK

REACTIONS (7)
  - Muscle rigidity [Unknown]
  - Neuroleptic malignant syndrome [Unknown]
  - Pyrexia [Unknown]
  - Blood creatine phosphokinase increased [Unknown]
  - Dystonia [Unknown]
  - Tachycardia [Unknown]
  - Hyperhidrosis [Unknown]
